FAERS Safety Report 6862222-X (Version None)
Quarter: 2010Q3

REPORT INFORMATION
  Report Type: 
  Country: None (occurrence: None)
  Receive Date: 20100721
  Receipt Date: 20100707
  Transmission Date: 20110219
  Serious: Yes (Other)
  Sender: FDA-Public Use
  Company Number: PHHY2010FR38775

PATIENT
  Sex: Female
  Weight: 106 kg

DRUGS (6)
  1. RASILEZ HCT [Suspect]
     Indication: HYPERTENSION
     Dosage: 150 /12.5 MG
     Dates: start: 20100517, end: 20100520
  2. EXFORGE [Suspect]
     Indication: HYPERTENSION
     Dosage: 160/10 MG
     Dates: start: 20100517, end: 20100520
  3. METFORMIN HCL [Concomitant]
     Indication: DIABETES MELLITUS
     Dosage: 1000 MG
  4. LEVOTHYROXINE SODIUM [Concomitant]
     Indication: HYPOTHYROIDISM
     Dosage: 100 MG
  5. GLIMEPIRIDE [Concomitant]
     Indication: DIABETES MELLITUS
  6. TEMERIT [Concomitant]
     Indication: HYPERTENSION
     Dosage: 5 MG

REACTIONS (3)
  - EYELID OEDEMA [None]
  - FACE OEDEMA [None]
  - PRURITUS GENERALISED [None]
